FAERS Safety Report 23597640 (Version 1)
Quarter: 2024Q1

REPORT INFORMATION
  Report Type: Report from Study
  Country: US (occurrence: US)
  Receive Date: 20240305
  Receipt Date: 20240305
  Transmission Date: 20240410
  Serious: Yes (Hospitalization, Other)
  Sender: FDA-Public Use
  Company Number: US-002147023-NVSC2022US236288

PATIENT
  Sex: Female
  Weight: 103.41 kg

DRUGS (3)
  1. TREPROSTINIL [Suspect]
     Active Substance: TREPROSTINIL
     Indication: Pulmonary arterial hypertension
     Dosage: 100 NG/KG/MIN, CONT
     Route: 042
     Dates: start: 20220824
  2. TREPROSTINIL [Suspect]
     Active Substance: TREPROSTINIL
     Dosage: 104 NG/KG/MIN, CONT
     Route: 042
  3. TREPROSTINIL [Suspect]
     Active Substance: TREPROSTINIL
     Dosage: 114 NG/KG/MIN, CONT
     Route: 042
     Dates: start: 20220824

REACTIONS (6)
  - Infection [Unknown]
  - Device related infection [Unknown]
  - Discomfort [Unknown]
  - Infusion site discharge [Unknown]
  - Infusion site erythema [Unknown]
  - Infusion site pain [Unknown]
